FAERS Safety Report 5295529-0 (Version None)
Quarter: 2007Q2

REPORT INFORMATION
  Report Type: 
  Country: None (occurrence: None)
  Receive Date: 20070405
  Receipt Date: 20070329
  Transmission Date: 20071010
  Serious: Yes (Death, Life-Threatening, Disabling)
  Sender: FDA-Public Use
  Company Number: 237227

PATIENT
  Age: 79 Year
  Sex: Male

DRUGS (3)
  1. ACTILYSE (ALTEPLASE)  POWDER AND SOLVENT FOR SOLUTION FOR INFUSION [Suspect]
     Indication: PULMONARY EMBOLISM
     Dosage: 50 MG, SINGLE, INTRAVENOUS
     Route: 042
     Dates: start: 20070119, end: 20070119
  2. ENOXAPARIN SODIUM [Suspect]
     Indication: PULMONARY EMBOLISM
     Dosage: 80 MG, SINGLE, SUBCUTANEOUS
     Route: 058
     Dates: start: 20070119, end: 20070119
  3. PANTOPRAZOLE SODIUM [Concomitant]

REACTIONS (7)
  - ATROPHY [None]
  - CEREBRAL HAEMORRHAGE [None]
  - FACIAL PARESIS [None]
  - HEMIHYPERTROPHY [None]
  - PNEUMONIA [None]
  - SOMNOLENCE [None]
  - SUBARACHNOID HAEMORRHAGE [None]
